FAERS Safety Report 22531857 (Version 1)
Quarter: 2023Q2

REPORT INFORMATION
  Report Type: Spontaneous
  Country: US (occurrence: None)
  Receive Date: 20230606
  Receipt Date: 20230606
  Transmission Date: 20230722
  Serious: Yes (Hospitalization)
  Sender: FDA-Public Use
  Company Number: None

PATIENT
  Sex: Male

DRUGS (7)
  1. SILDENAFIL [Suspect]
     Active Substance: SILDENAFIL
     Indication: Pulmonary arterial hypertension
     Dosage: FREQUENCY : 3 TIMES A DAY;?OTHER ROUTE : G-TUBE;?
     Route: 050
     Dates: start: 202302
  2. CYCLOSPORINE MODIFIED [Suspect]
     Active Substance: CYCLOSPORINE
     Indication: Thrombocytopenia
     Dosage: FREQUENCY : 3 TIMES A DAY;?
     Route: 048
     Dates: start: 202302
  3. CYCLOSPORINE MODIFIED [Suspect]
     Active Substance: CYCLOSPORINE
     Indication: Bone marrow transplant
  4. CYCLOSPORINE MODIFIED [Suspect]
     Active Substance: CYCLOSPORINE
     Indication: Wiskott-Aldrich syndrome
  5. REMODULIN [Suspect]
     Active Substance: TREPROSTINIL
  6. PROMACTA [Suspect]
     Active Substance: ELTROMBOPAG OLAMINE
  7. NIVESTYM [Suspect]
     Active Substance: FILGRASTIM-AAFI

REACTIONS (1)
  - Cytomegalovirus viraemia [None]
